FAERS Safety Report 8956191 (Version 1)
Quarter: 2012Q4

REPORT INFORMATION
  Report Type: 
  Country: US (occurrence: US)
  Receive Date: 20121210
  Receipt Date: 20121210
  Transmission Date: 20130627
  Serious: No
  Sender: FDA-Public Use
  Company Number: US-009507513-1212USA001770

PATIENT
  Age: 55 Year
  Sex: Male

DRUGS (3)
  1. VICTRELIS [Suspect]
     Indication: HEPATITIS C
     Dosage: 1 unit of use bottle of 12 - 4 capsules
     Route: 048
     Dates: start: 20120523
  2. PEGASYS [Concomitant]
  3. RIBASPHERE [Concomitant]
     Dosage: UNK

REACTIONS (2)
  - Glaucoma [Not Recovered/Not Resolved]
  - Injury corneal [Not Recovered/Not Resolved]
